FAERS Safety Report 21548893 (Version 1)
Quarter: 2022Q4

REPORT INFORMATION
  Report Type: Spontaneous
  Country: DE (occurrence: DE)
  Receive Date: 20221103
  Receipt Date: 20221103
  Transmission Date: 20230112
  Serious: Yes (Other)
  Sender: FDA-Public Use
  Company Number: DE-002147023-NVSC2022DE198345

PATIENT
  Age: 34 Year
  Sex: Female
  Weight: 62 kg

DRUGS (20)
  1. MONTELUKAST [Suspect]
     Active Substance: MONTELUKAST SODIUM
     Indication: Chronic spontaneous urticaria
     Dosage: 10 MG, QD
     Route: 065
  2. PREDNISOLONE [Suspect]
     Active Substance: PREDNISOLONE
     Indication: Urticaria
     Dosage: UNK
     Route: 048
     Dates: end: 202108
  3. XOLAIR [Suspect]
     Active Substance: OMALIZUMAB
     Indication: Asthma
     Dosage: 300 MG (150MG X2), EVERY 4 WEEKS
     Route: 058
     Dates: end: 202109
  4. XOLAIR [Suspect]
     Active Substance: OMALIZUMAB
     Indication: Chronic spontaneous urticaria
     Dosage: 300 MG (150MG X2), EVERY 4 WEEKS
     Route: 058
  5. XOLAIR [Suspect]
     Active Substance: OMALIZUMAB
     Dosage: 300 MG (150MG X2), EVERY 4 WEEKS
     Route: 058
     Dates: end: 2022
  6. RUPATADINE FUMARATE [Suspect]
     Active Substance: RUPATADINE FUMARATE
     Indication: Chronic spontaneous urticaria
     Dosage: UNK, Q6H (10 MG)
     Route: 065
  7. LEVOTHYROXINE [Concomitant]
     Active Substance: LEVOTHYROXINE
     Indication: Autoimmune thyroiditis
     Dosage: UNK
     Route: 065
  8. TRIPTAN [Concomitant]
     Indication: Product used for unknown indication
     Dosage: UNK AS NEEDED
     Route: 065
  9. CANDESARTAN [Concomitant]
     Active Substance: CANDESARTAN
     Indication: Product used for unknown indication
     Dosage: UNK
     Route: 065
  10. TOUJEO [Concomitant]
     Active Substance: INSULIN GLARGINE
     Indication: Type 1 diabetes mellitus
     Dosage: UNK
     Route: 065
  11. INSULIN NOS [Concomitant]
     Active Substance: INSULIN NOS
     Indication: Product used for unknown indication
     Dosage: UNK
     Route: 065
  12. NOVORAPID [Concomitant]
     Active Substance: INSULIN ASPART
     Indication: Type 1 diabetes mellitus
     Dosage: UNK
     Route: 065
  13. NAPROXEN [Concomitant]
     Active Substance: NAPROXEN
     Indication: Product used for unknown indication
     Dosage: UNK. AS NEEDED
     Route: 065
  14. EBASTINE [Concomitant]
     Active Substance: EBASTINE
     Indication: Product used for unknown indication
     Dosage: 10 MG, BID (2-0-2, DAILY)
     Route: 065
  15. EBASTINE [Concomitant]
     Active Substance: EBASTINE
     Dosage: 10 MG, QD (1XDAILY)
     Route: 065
  16. PROPOFOL [Concomitant]
     Active Substance: PROPOFOL
     Indication: Product used for unknown indication
     Dosage: 220 MG
     Route: 042
  17. ROSUVASTATIN [Concomitant]
     Active Substance: ROSUVASTATIN
     Indication: Asthma
     Dosage: UNKNOWN
     Route: 065
  18. SYMBICORT [Concomitant]
     Active Substance: BUDESONIDE\FORMOTEROL FUMARATE DIHYDRATE
     Indication: Asthma
     Dosage: UNK, BID
     Route: 065
  19. CLEMASTINE FUMARATE [Concomitant]
     Active Substance: CLEMASTINE FUMARATE
     Indication: Product used for unknown indication
     Dosage: UNK
     Route: 065
  20. VITAMIN D [Concomitant]
     Active Substance: VITAMIN D NOS
     Indication: Product used for unknown indication
     Dosage: UNK
     Route: 065

REACTIONS (24)
  - Alpha haemolytic streptococcal infection [Unknown]
  - Angioedema [Unknown]
  - Urticaria [Recovering/Resolving]
  - Neisseria infection [Unknown]
  - Gastric disorder [Recovering/Resolving]
  - Swelling face [Recovering/Resolving]
  - Leukocytosis [Recovered/Resolved]
  - Lymphangiectasia [Unknown]
  - Helicobacter test positive [Unknown]
  - Red blood cell count increased [Recovered/Resolved]
  - Haematocrit increased [Recovered/Resolved]
  - Chronic gastritis [Unknown]
  - Blood immunoglobulin E increased [Unknown]
  - Abdominal pain upper [Recovered/Resolved]
  - Blood lactate dehydrogenase increased [Unknown]
  - Blood thyroid stimulating hormone abnormal [Unknown]
  - Platelet count increased [Unknown]
  - Tryptase increased [Recovered/Resolved]
  - C-reactive protein increased [Not Recovered/Not Resolved]
  - Blood glucose abnormal [Recovered/Resolved]
  - Erythema [Unknown]
  - Vomiting [Recovering/Resolving]
  - Nausea [Recovered/Resolved]
  - Off label use [Unknown]

NARRATIVE: CASE EVENT DATE: 20210101
